FAERS Safety Report 4433238-8 (Version None)
Quarter: 2004Q3

REPORT INFORMATION
  Report Type: 
  Country: None (occurrence: None)
  Receive Date: 20040824
  Receipt Date: 20040812
  Transmission Date: 20050211
  Serious: Yes (Hospitalization)
  Sender: FDA-Public Use
  Company Number: 2004055266

PATIENT
  Sex: Female

DRUGS (3)
  1. NATURAL CITRUS LISTERINE (EUCALYPTOL, MENTHOL, METHYL SALICYLATE, THYM [Suspect]
     Indication: HALITOSIS
     Dosage: A LITTLE BIT OF A CUPFUL DAILY, ORAL
     Route: 048
  2. ANTIHYPERTENSIVES (ANTIHYPERTENSIVES) [Suspect]
     Indication: BLOOD PRESSURE INCREASED
     Dosage: ORAL
     Route: 048
  3. STOMATOLOGICALS, MOUTH PREPARATIONS (STOMATOLOGICALS MOUTH PREPARATION [Concomitant]

REACTIONS (3)
  - CEREBROVASCULAR ACCIDENT [None]
  - COUGH [None]
  - DIPLOPIA [None]
